FAERS Safety Report 7348207-8 (Version None)
Quarter: 2011Q1

REPORT INFORMATION
  Report Type: 
  Country: None (occurrence: None)
  Receive Date: 20110311
  Receipt Date: 20101115
  Transmission Date: 20110831
  Serious: No
  Sender: FDA-Public Use
  Company Number: US-BAYER-2010-004931

PATIENT
  Sex: Female
  Weight: 61.224 kg

DRUGS (4)
  1. ZOCOR [Concomitant]
  2. METOPROLOL [Concomitant]
  3. NAPROSYN [Concomitant]
  4. ALEVE (CAPLET) [Suspect]
     Indication: ARTHRALGIA
     Dosage: BOTTLE SIZE 40S
     Route: 048
     Dates: start: 20101114

REACTIONS (1)
  - NO ADVERSE EVENT [None]
